FAERS Safety Report 7387482-0 (Version None)
Quarter: 2011Q1

REPORT INFORMATION
  Report Type: 
  Country: None (occurrence: None)
  Receive Date: 20110331
  Receipt Date: 20110330
  Transmission Date: 20110831
  Serious: Yes (Death, Other)
  Sender: FDA-Public Use
  Company Number: JP-PFIZER INC-2011071144

PATIENT
  Age: 90 Year
  Sex: Female

DRUGS (11)
  1. TOLEDOMIN [Concomitant]
     Dosage: UNK
  2. BUFFERIN [Concomitant]
     Dosage: UNK
  3. TEPRENONE [Concomitant]
     Dosage: UNK
  4. ZOLOFT [Suspect]
     Dosage: 25 MG DAILY
     Route: 048
     Dates: start: 20110307
  5. RHEUMATREX [Concomitant]
     Dosage: UNK
     Route: 048
  6. AZULFIDINE [Concomitant]
     Dosage: UNK
     Route: 048
  7. NIFEDIPINE [Concomitant]
     Dosage: UNK
  8. BONALON [Concomitant]
     Dosage: UNK
  9. LOXONIN [Concomitant]
     Dosage: UNK
  10. CALONAL [Concomitant]
     Dosage: UNK
  11. ENPRAL [Concomitant]
     Dosage: UNK

REACTIONS (2)
  - CEREBROVASCULAR DISORDER [None]
  - INAPPROPRIATE ANTIDIURETIC HORMONE SECRETION [None]
